FAERS Safety Report 4490615-7 (Version None)
Quarter: 2004Q4

REPORT INFORMATION
  Report Type: 
  Country: None (occurrence: None)
  Receive Date: 20041027
  Receipt Date: 20041020
  Transmission Date: 20050328
  Serious: Yes (Other)
  Sender: FDA-Public Use
  Company Number: GBWYE067227SEP04

PATIENT
  Sex: Male

DRUGS (3)
  1. EFFEXOR XR [Suspect]
     Indication: BIPOLAR DISORDER
     Dosage: 225 MG 1 X PER 1 DAY
     Route: 048
     Dates: start: 20020101, end: 20040101
  2. FLUOXETINE [Suspect]
     Indication: BIPOLAR DISORDER
     Dosage: 20 MG 1 X PER 1 DAY
     Route: 048
     Dates: start: 20040101
  3. VALPROATE SODIUM [Suspect]
     Indication: BIPOLAR DISORDER
     Dosage: 2000 MG 1 X PER 1 DAY
     Route: 048
     Dates: start: 20030701

REACTIONS (2)
  - DRUG EXPOSURE DURING PREGNANCY [None]
  - SPINA BIFIDA [None]
